FAERS Safety Report 9396662 (Version 1)
Quarter: 2013Q3

REPORT INFORMATION
  Report Type: Spontaneous
  Country: US (occurrence: US)
  Receive Date: 20130711
  Receipt Date: 20130711
  Transmission Date: 20140515
  Serious: No
  Sender: FDA-Public Use
  Company Number: US-009507513-1307USA004954

PATIENT
  Sex: 0

DRUGS (1)
  1. NEXPLANON [Suspect]
     Dosage: 68 MG/ONE ROD
     Route: 059

REACTIONS (3)
  - Device breakage [Unknown]
  - Device kink [Unknown]
  - Discomfort [Unknown]
